FAERS Safety Report 17011293 (Version 1)
Quarter: 2019Q4

REPORT INFORMATION
  Report Type: Spontaneous
  Country: CA (occurrence: CA)
  Receive Date: 20191108
  Receipt Date: 20191108
  Transmission Date: 20200122
  Serious: Yes (Hospitalization, Other)
  Sender: FDA-Public Use
  Company Number: CA-TEVA-151647USA

PATIENT
  Age: 57 Year
  Sex: Male

DRUGS (1)
  1. METOPROLOL TARTRATE TABLETS [Suspect]
     Active Substance: METOPROLOL TARTRATE
     Indication: PRODUCT USED FOR UNKNOWN INDICATION
     Dosage: 50 MILLIGRAM DAILY; 25 MG, BID
     Route: 048

REACTIONS (2)
  - Hallucination, visual [Recovered/Resolved]
  - Anxiety [Recovered/Resolved]
